FAERS Safety Report 9272027 (Version 2)
Quarter: 2013Q2

REPORT INFORMATION
  Report Type: Spontaneous
  Country: US (occurrence: US)
  Receive Date: 20130506
  Receipt Date: 20130614
  Transmission Date: 20140414
  Serious: No
  Sender: FDA-Public Use
  Company Number: US-PFIZER INC-2013138822

PATIENT
  Age: 8 Year
  Sex: 0

DRUGS (1)
  1. QUILLIVANT XR [Suspect]
     Indication: ATTENTION DEFICIT/HYPERACTIVITY DISORDER
     Dosage: 5 MG, 1X/DAY (Q DAY)
     Dates: start: 20130321, end: 20130425

REACTIONS (2)
  - Irritability [Unknown]
  - Agitation [Unknown]
